FAERS Safety Report 19913763 (Version 1)
Quarter: 2021Q4

REPORT INFORMATION
  Report Type: Spontaneous
  Country: US (occurrence: US)
  Receive Date: 20211004
  Receipt Date: 20211004
  Transmission Date: 20220304
  Serious: No
  Sender: FDA-Public Use
  Company Number: US-BRISTOL-MYERS SQUIBB COMPANY-BMS-2021-101191

PATIENT
  Age: 60 Year
  Sex: Female
  Weight: 149.68 kg

DRUGS (1)
  1. OPDIVO [Suspect]
     Active Substance: NIVOLUMAB
     Indication: Neuroendocrine tumour
     Dosage: 240 MILLIGRAM, Q2WK
     Route: 042
     Dates: start: 20201019

REACTIONS (1)
  - Adverse event [Unknown]
